FAERS Safety Report 10419068 (Version 1)
Quarter: 2014Q2

REPORT INFORMATION
  Report Type: Spontaneous
  Country: US (occurrence: None)
  Receive Date: 20140625
  Receipt Date: 20140625
  Transmission Date: 20141212
  Serious: No
  Sender: FDA-Public Use
  Company Number: A-NJ2014-97194

PATIENT
  Age: 56 Year
  Sex: Male

DRUGS (5)
  1. OPSUMIT (MACITENTAN) [Suspect]
     Indication: PULMONARY HYPERTENSION
     Route: 048
     Dates: start: 20140306
  2. HYDROCODONE [Concomitant]
  3. ASPIRIN (ACETYLSALICYLIC ACID) [Concomitant]
  4. SULFAMETHOXAZOLE [Concomitant]
  5. ADCIRCA (TADALAFIL) [Concomitant]

REACTIONS (1)
  - Nasal congestion [None]
